FAERS Safety Report 22231881 (Version 1)
Quarter: 2023Q2

REPORT INFORMATION
  Report Type: Spontaneous
  Country: US (occurrence: None)
  Receive Date: 20230420
  Receipt Date: 20230420
  Transmission Date: 20230721
  Serious: No
  Sender: FDA-Public Use
  Company Number: US-ROCHE-3121939

PATIENT
  Sex: Male

DRUGS (1)
  1. ESBRIET [Suspect]
     Active Substance: PIRFENIDONE
     Indication: Idiopathic pulmonary fibrosis
     Dosage: 1 TABLET 3 TIMES DAILY FOR 1 WEEK, 2 TABLETS 3 TIMES DAILY FOR 1 WEEK,3 TABLETS 3 TIMES DAILY WITH M
     Route: 065

REACTIONS (1)
  - Headache [Unknown]
